FAERS Safety Report 9821794 (Version 1)
Quarter: 2014Q1

REPORT INFORMATION
  Report Type: Spontaneous
  Country: AU (occurrence: AU)
  Receive Date: 20140116
  Receipt Date: 20140116
  Transmission Date: 20141002
  Serious: Yes (Hospitalization)
  Sender: FDA-Public Use
  Company Number: AU-PFIZER INC-2014013119

PATIENT
  Sex: Male

DRUGS (2)
  1. XANAX [Suspect]
     Dosage: 2 MG, UNK
  2. XANAX [Suspect]
     Dosage: 25 TABLETS OF THE 2MG STRENGTH AT ONE GO

REACTIONS (3)
  - Overdose [Not Recovered/Not Resolved]
  - Anger [Not Recovered/Not Resolved]
  - Social avoidant behaviour [Not Recovered/Not Resolved]
